FAERS Safety Report 7798049-4 (Version None)
Quarter: 2011Q4

REPORT INFORMATION
  Report Type: 
  Country: None (occurrence: None)
  Receive Date: 20111005
  Receipt Date: 20110928
  Transmission Date: 20120403
  Serious: Yes (Hospitalization)
  Sender: FDA-Public Use
  Company Number: JP-CEPHALON-2011002107

PATIENT
  Age: 60 Year
  Sex: Female

DRUGS (7)
  1. RITUXIMAB [Concomitant]
     Dates: start: 20110413, end: 20110413
  2. BENDAMUSTINE HCL [Suspect]
     Indication: B-CELL LYMPHOMA
     Route: 042
     Dates: start: 20110414
  3. FLUCONAZOLE [Suspect]
     Indication: INFECTION PROPHYLAXIS
     Route: 048
     Dates: start: 20110412, end: 20110415
  4. ALLOPURINOL [Suspect]
     Route: 048
     Dates: start: 20110414, end: 20110415
  5. FAMOTIDINE [Suspect]
     Route: 048
     Dates: start: 20110414, end: 20110415
  6. SULFAMETHOXAZOLE AND TRIMETHOPRIM [Suspect]
     Dates: start: 20110414, end: 20110415
  7. LEVOFLOXACIN [Suspect]
     Indication: INFECTION PROPHYLAXIS
     Route: 048
     Dates: start: 20110412, end: 20110415

REACTIONS (3)
  - BONE MARROW FAILURE [None]
  - BLOOD CREATININE INCREASED [None]
  - UPPER RESPIRATORY TRACT INFLAMMATION [None]
